FAERS Safety Report 12657932 (Version 2)
Quarter: 2016Q3

REPORT INFORMATION
  Report Type: Spontaneous
  Country: US (occurrence: US)
  Receive Date: 20160817
  Receipt Date: 20160824
  Transmission Date: 20161109
  Serious: Yes (Other)
  Sender: FDA-Public Use
  Company Number: US-AMGEN-USASP2016103118

PATIENT
  Sex: Female

DRUGS (7)
  1. VITAMIN A [Concomitant]
     Active Substance: VITAMIN A
  2. VITAMIN D [Concomitant]
     Active Substance: CHOLECALCIFEROL
  3. BIOTIN [Suspect]
     Active Substance: BIOTIN
     Indication: PRODUCT USED FOR UNKNOWN INDICATION
     Dosage: UNK
     Route: 065
     Dates: start: 2016
  4. VITAMIN E [Concomitant]
     Active Substance: .ALPHA.-TOCOPHEROL
  5. PROLIA [Suspect]
     Active Substance: DENOSUMAB
     Indication: PRODUCT USED FOR UNKNOWN INDICATION
     Dosage: UNK
     Route: 065
     Dates: start: 20160207
  6. VITAMIN K [Concomitant]
     Active Substance: PHYTONADIONE
  7. SYNTHROID [Concomitant]
     Active Substance: LEVOTHYROXINE SODIUM
     Dosage: UNK
     Dates: start: 2010

REACTIONS (5)
  - Alopecia [Unknown]
  - Nail growth abnormal [Unknown]
  - Surgery [Unknown]
  - Foot operation [Unknown]
  - Dental implantation [Unknown]

NARRATIVE: CASE EVENT DATE: 201605
